FAERS Safety Report 20298146 (Version 1)
Quarter: 2022Q1

REPORT INFORMATION
  Report Type: Spontaneous
  Country: US (occurrence: None)
  Receive Date: 20220104
  Receipt Date: 20220104
  Transmission Date: 20220423
  Serious: Yes (Life-Threatening, Hospitalization)
  Sender: FDA-Public Use
  Company Number: None

PATIENT
  Age: 62 Year
  Sex: Male

DRUGS (1)
  1. WARFARIN SODIUM [Suspect]
     Active Substance: WARFARIN SODIUM
     Indication: Intracardiac thrombus
     Dosage: FREQUENCY : DAILY;?
     Route: 048
     Dates: start: 20210929, end: 20211227

REACTIONS (8)
  - Gastrointestinal haemorrhage [None]
  - Tachycardia [None]
  - Haemoglobin decreased [None]
  - Haemorrhoids [None]
  - Rectal polyp [None]
  - Large intestinal ulcer [None]
  - Diverticulum intestinal [None]
  - Therapy interrupted [None]

NARRATIVE: CASE EVENT DATE: 20211227
